FAERS Safety Report 7183854-8 (Version None)
Quarter: 2010Q4

REPORT INFORMATION
  Report Type: 
  Country: None (occurrence: None)
  Receive Date: 20101222
  Receipt Date: 20101213
  Transmission Date: 20110411
  Serious: Yes (Other)
  Sender: FDA-Public Use
  Company Number: ES-JNJFOC-20101205046

PATIENT
  Age: 56 Year
  Sex: Female

DRUGS (7)
  1. REMICADE [Suspect]
     Indication: RHEUMATOID ARTHRITIS
     Route: 042
  2. NSAID [Concomitant]
  3. FOLIC ACID [Concomitant]
  4. BISPHOSPHONATES [Concomitant]
  5. CALCIUM WITH VITAMIN D [Concomitant]
  6. METHOTREXATE [Concomitant]
  7. ZAMENE [Concomitant]

REACTIONS (1)
  - PULMONARY TUBERCULOSIS [None]
